FAERS Safety Report 9642059 (Version 1)
Quarter: 2013Q4

REPORT INFORMATION
  Report Type: Spontaneous
  Country: DE (occurrence: DE)
  Receive Date: 20131023
  Receipt Date: 20131023
  Transmission Date: 20140711
  Serious: Yes (Other)
  Sender: FDA-Public Use
  Company Number: PHHY2013DE116480

PATIENT
  Sex: 0

DRUGS (3)
  1. OLMESARTAN [Suspect]
     Indication: CEREBROVASCULAR ACCIDENT
     Route: 064
  2. METHYLDOPA [Suspect]
     Route: 064
  3. FUROSEMIDE [Suspect]
     Route: 064

REACTIONS (3)
  - Kidney enlargement [Recovered/Resolved]
  - Premature baby [Unknown]
  - Foetal exposure during pregnancy [Unknown]
